FAERS Safety Report 11756375 (Version 1)
Quarter: 2015Q4

REPORT INFORMATION
  Report Type: Spontaneous
  Country: US (occurrence: US)
  Receive Date: 20151119
  Receipt Date: 20151119
  Transmission Date: 20160304
  Serious: No
  Sender: FDA-Public Use
  Company Number: US-ALLERGAN-1512640US

PATIENT
  Sex: Female
  Weight: 50.79 kg

DRUGS (4)
  1. ALCOHOL. [Suspect]
     Active Substance: ALCOHOL
     Indication: ALCOHOL USE
  2. COMBIGAN [Interacting]
     Active Substance: BRIMONIDINE TARTRATE\TIMOLOL MALEATE
     Indication: GLAUCOMA
     Dosage: 2 GTT, BID
     Route: 047
  3. COMBIGAN [Interacting]
     Active Substance: BRIMONIDINE TARTRATE\TIMOLOL MALEATE
     Dosage: 2 GTT, BID
     Route: 047
     Dates: start: 20150705
  4. DORZOLAMIDE HYDROCHLORIDE. [Concomitant]
     Active Substance: DORZOLAMIDE HYDROCHLORIDE
     Indication: GLAUCOMA
     Dosage: 1 GTT, TID
     Route: 047

REACTIONS (8)
  - Sneezing [Recovered/Resolved]
  - Dysgeusia [Recovered/Resolved]
  - Abdominal discomfort [Recovered/Resolved]
  - Cough [Recovered/Resolved]
  - Fatigue [Recovered/Resolved]
  - Alcohol interaction [Recovered/Resolved]
  - Hypersensitivity [Recovered/Resolved]
  - Ageusia [Recovered/Resolved]
